FAERS Safety Report 18674882 (Version 2)
Quarter: 2021Q2

REPORT INFORMATION
  Report Type: Report from Study
  Country: JP (occurrence: JP)
  Receive Date: 20201229
  Receipt Date: 20210413
  Transmission Date: 20210717
  Serious: Yes (Death, Hospitalization, Disabling, Other)
  Sender: FDA-Public Use
  Company Number: PHHY2013JP169459

PATIENT
  Age: 45 Year
  Sex: Male
  Weight: 77 kg

DRUGS (7)
  1. TAKEPRON [Concomitant]
     Active Substance: LANSOPRAZOLE
     Indication: ANGIOSARCOMA
     Dosage: 1 DF, QD
     Route: 048
  2. PREDNISOLONE. [Concomitant]
     Active Substance: PREDNISOLONE
     Indication: ANGIOSARCOMA
     Dosage: 1 DF, QD
     Route: 048
  3. VOTRIENT [Suspect]
     Active Substance: PAZOPANIB HYDROCHLORIDE
     Indication: ANGIOSARCOMA
     Dosage: 600 MG, QD
     Route: 048
     Dates: start: 20130208, end: 20130306
  4. MAGMITT [Concomitant]
     Active Substance: MAGNESIUM OXIDE
     Indication: ANGIOSARCOMA
     Dosage: 3 DF, QD
     Route: 048
  5. LOBU [Concomitant]
     Active Substance: LOBUCAVIR
     Indication: ANGIOSARCOMA
     Dosage: 3 DF, QD
     Route: 048
  6. NAIXAN [Concomitant]
     Active Substance: NAPROXEN SODIUM
     Indication: ANGIOSARCOMA
     Dosage: 3 DF, QD
     Route: 048
  7. LYRICA [Concomitant]
     Active Substance: PREGABALIN
     Indication: ANGIOSARCOMA
     Dosage: 2 DF, QD
     Route: 048

REACTIONS (10)
  - Angiosarcoma [Fatal]
  - Hepatic function abnormal [Fatal]
  - Concomitant disease aggravated [Fatal]
  - Jaundice [Fatal]
  - Nausea [Not Recovered/Not Resolved]
  - Hypertension [Unknown]
  - Decreased appetite [Fatal]
  - Malignant neoplasm progression [Fatal]
  - Vomiting [Not Recovered/Not Resolved]
  - Thyroid disorder [Not Recovered/Not Resolved]

NARRATIVE: CASE EVENT DATE: 20130306
